FAERS Safety Report 13170042 (Version 1)
Quarter: 2017Q1

REPORT INFORMATION
  Report Type: Report from Study
  Country: None (occurrence: PT)
  Receive Date: 20170201
  Receipt Date: 20170201
  Transmission Date: 20170428
  Serious: Yes (Other)
  Sender: FDA-Public Use
  Company Number: PT-ABBVIE-17K-130-1848496-00

PATIENT
  Sex: Female

DRUGS (1)
  1. HUMIRA [Suspect]
     Active Substance: ADALIMUMAB
     Indication: PSORIASIS
     Route: 058
     Dates: start: 20141211, end: 2016

REACTIONS (2)
  - Antinuclear antibody increased [Recovered/Resolved]
  - Laboratory test abnormal [Recovered/Resolved]
